FAERS Safety Report 24659305 (Version 7)
Quarter: 2025Q1

REPORT INFORMATION
  Report Type: Spontaneous
  Country: US (occurrence: US)
  Receive Date: 20241125
  Receipt Date: 20250218
  Transmission Date: 20250409
  Serious: No
  Sender: PFIZER
  Company Number: US-PFIZER INC-202400304316

PATIENT
  Age: 8 Year
  Sex: Male
  Weight: 22.68 kg

DRUGS (2)
  1. GENOTROPIN [Suspect]
     Active Substance: SOMATROPIN
     Indication: Short stature
     Dosage: 1 MG, DAILY
     Dates: start: 202302, end: 202411
  2. LEVOXYL [Concomitant]
     Active Substance: LEVOTHYROXINE SODIUM
     Indication: Thyroid disorder

REACTIONS (8)
  - Device use error [Unknown]
  - Device breakage [Unknown]
  - Poor quality device used [Unknown]
  - Device mechanical issue [Unknown]
  - Device issue [Unknown]
  - Wrong technique in device usage process [Unknown]
  - Expired device used [Unknown]
  - Drug dose omission by device [Unknown]

NARRATIVE: CASE EVENT DATE: 20241101
